FAERS Safety Report 6249758-X (Version None)
Quarter: 2009Q2

REPORT INFORMATION
  Report Type: 
  Country: None (occurrence: None)
  Receive Date: 20090624
  Receipt Date: 20090612
  Transmission Date: 20091009
  Serious: Yes (Death, Hospitalization, Other)
  Sender: FDA-Public Use
  Company Number: 82556

PATIENT
  Age: 19 Year
  Sex: Male

DRUGS (2)
  1. CISPLATIN [Suspect]
     Indication: METASTASES TO LUNG
  2. ETOPOSIDE [Suspect]
     Indication: METASTASES TO LUNG

REACTIONS (6)
  - ACUTE RESPIRATORY DISTRESS SYNDROME [None]
  - DRUG INEFFECTIVE [None]
  - GENERAL PHYSICAL HEALTH DETERIORATION [None]
  - HAEMOPTYSIS [None]
  - PYREXIA [None]
  - RESPIRATORY FAILURE [None]
